FAERS Safety Report 8277161-X (Version None)
Quarter: 2012Q2

REPORT INFORMATION
  Report Type: 
  Country: None (occurrence: None)
  Receive Date: 20120412
  Receipt Date: 20120409
  Transmission Date: 20120825
  Serious: Yes (Other)
  Sender: FDA-Public Use
  Company Number: US-PFIZER INC-2012088737

PATIENT
  Sex: Male
  Weight: 85 kg

DRUGS (3)
  1. EFFEXOR XR [Suspect]
     Indication: BIPOLAR DISORDER
     Dosage: 325 MG, 1X/DAY
     Route: 048
  2. TENORETIC 100 [Concomitant]
     Indication: HYPERTENSION
     Dosage: UNK
  3. CIPROFLOXACIN HYDROCHLORIDE [Suspect]
     Indication: URINARY TRACT INFECTION
     Dosage: 500 MG, 2X/DAY
     Route: 048
     Dates: start: 20120406

REACTIONS (2)
  - URINARY TRACT INFECTION [None]
  - DEPRESSION [None]
